FAERS Safety Report 7795359-1 (Version None)
Quarter: 2011Q3

REPORT INFORMATION
  Report Type: 
  Country: None (occurrence: None)
  Receive Date: 20110930
  Receipt Date: 20110921
  Transmission Date: 20111222
  Serious: Yes (Hospitalization)
  Sender: FDA-Public Use
  Company Number: 2011HGS-002563

PATIENT
  Age: 36 Year
  Sex: Female
  Weight: 68.0396 kg

DRUGS (10)
  1. VITAMIN D (ERGOCALCIFEROL) (ERGOCALCIFEROL) [Concomitant]
  2. CELLCEPT (MYCOPHENOLATE MOFETIL) (MYCOPHENOLATE MOFETIL) [Concomitant]
  3. IRON SUPPLEMENT (IRON) (IRON) [Concomitant]
  4. CALCIUM (CALCIUM) (CALCIUM) [Concomitant]
  5. BENLYSTA [Suspect]
     Indication: SYSTEMIC LUPUS ERYTHEMATOSUS
     Dosage: 1 IN 28 D, INTRAVENOUS DRIP
     Route: 041
     Dates: start: 20110411
  6. PLAQUENIL (HYDROXYCHLOROQUINE SULFATE) (HYDROXYCHLOROQUINE SULFATE) [Concomitant]
  7. PERCOCET (OXYCOCET) (PARACETAMOL, OXYCODONE HYDROCHLORIDE) [Concomitant]
  8. NEXIUM [Concomitant]
  9. PREDNISONE [Concomitant]
  10. AMBIEN [Concomitant]

REACTIONS (14)
  - CONDITION AGGRAVATED [None]
  - VOMITING [None]
  - JOINT SWELLING [None]
  - CHEST PAIN [None]
  - NAUSEA [None]
  - PYREXIA [None]
  - MYALGIA [None]
  - INSOMNIA [None]
  - PAIN IN EXTREMITY [None]
  - INFUSION SITE RASH [None]
  - MIGRAINE [None]
  - SYSTEMIC LUPUS ERYTHEMATOSUS [None]
  - FATIGUE [None]
  - DIARRHOEA [None]
